FAERS Safety Report 16284054 (Version 4)
Quarter: 2020Q3

REPORT INFORMATION
  Report Type: Report from Study
  Country: BR (occurrence: BR)
  Receive Date: 20190507
  Receipt Date: 20200828
  Transmission Date: 20201102
  Serious: Yes (Hospitalization, Other)
  Sender: FDA-Public Use
  Company Number: PHHY2019BR102754

PATIENT
  Age: 82 Year
  Sex: Male
  Weight: 90 kg

DRUGS (5)
  1. LOSARTAN. [Concomitant]
     Active Substance: LOSARTAN
     Indication: HYPERTENSION
     Dosage: 50 MG, QD
     Route: 065
  2. LAPIN [Concomitant]
     Indication: HYPERTENSION
     Dosage: 5 MG, BID
     Route: 065
  3. SANDOSTATIN LAR DEPOT [Suspect]
     Active Substance: OCTREOTIDE ACETATE
     Indication: ACROMEGALY
     Dosage: 30 MG, QMO
     Route: 030
     Dates: start: 2011
  4. SANDOSTATIN LAR DEPOT [Suspect]
     Active Substance: OCTREOTIDE ACETATE
     Dosage: QMO
     Route: 030
     Dates: start: 20190504
  5. SANDOSTATIN LAR DEPOT [Suspect]
     Active Substance: OCTREOTIDE ACETATE
     Dosage: 30 MG, QMO
     Route: 030
     Dates: start: 20190325

REACTIONS (22)
  - Acromegaly [Not Recovered/Not Resolved]
  - Movement disorder [Not Recovered/Not Resolved]
  - Hypoacusis [Not Recovered/Not Resolved]
  - Decreased appetite [Recovering/Resolving]
  - Glucose tolerance impaired [Not Recovered/Not Resolved]
  - Vomiting [Recovering/Resolving]
  - Syncope [Recovered/Resolved]
  - Visual impairment [Recovered/Resolved]
  - Malignant neoplasm progression [Not Recovered/Not Resolved]
  - Pneumonia [Recovering/Resolving]
  - Cerebrovascular accident [Not Recovered/Not Resolved]
  - Agitation [Recovered/Resolved]
  - Loss of consciousness [Recovered/Resolved]
  - Cough [Recovering/Resolving]
  - Tongue disorder [Recovered/Resolved]
  - Pain in extremity [Unknown]
  - Gait disturbance [Not Recovered/Not Resolved]
  - Illness [Recovered/Resolved]
  - Memory impairment [Unknown]
  - Nausea [Recovering/Resolving]
  - Swelling [Unknown]
  - Pain [Unknown]

NARRATIVE: CASE EVENT DATE: 20190408
